FAERS Safety Report 7369433-8 (Version None)
Quarter: 2011Q1

REPORT INFORMATION
  Report Type: 
  Country: None (occurrence: None)
  Receive Date: 20110323
  Receipt Date: 20110310
  Transmission Date: 20110831
  Serious: Yes (Other)
  Sender: FDA-Public Use
  Company Number: US-AMGEN-USASP2011013400

PATIENT
  Age: 64 Year
  Sex: Female

DRUGS (2)
  1. ENBREL [Suspect]
     Indication: ANKYLOSING SPONDYLITIS
     Dosage: 25 MG, 2 TIMES/WK
     Dates: start: 20101214
  2. ENBREL [Suspect]
     Indication: PSORIATIC ARTHROPATHY

REACTIONS (10)
  - FUNGAL INFECTION [None]
  - DIZZINESS [None]
  - HEADACHE [None]
  - NAUSEA [None]
  - DIARRHOEA [None]
  - DEPRESSED MOOD [None]
  - WRONG TECHNIQUE IN DRUG USAGE PROCESS [None]
  - VISUAL IMPAIRMENT [None]
  - HYPOAESTHESIA [None]
  - INJECTION SITE HAEMATOMA [None]
